FAERS Safety Report 5852577-7 (Version None)
Quarter: 2008Q3

REPORT INFORMATION
  Report Type: 
  Country: None (occurrence: None)
  Receive Date: 20080820
  Receipt Date: 20080820
  Transmission Date: 20090109
  Serious: Yes (Hospitalization)
  Sender: FDA-Public Use
  Company Number: None

PATIENT
  Age: 52 Year
  Sex: Male
  Weight: 97.1 kg

DRUGS (1)
  1. CANCIDAS [Suspect]
     Indication: SYSTEMIC CANDIDA
     Dates: start: 20080812, end: 20080814

REACTIONS (5)
  - AGITATION [None]
  - HALLUCINATION [None]
  - MENTAL STATUS CHANGES [None]
  - MUSCLE TWITCHING [None]
  - TREMOR [None]
